FAERS Safety Report 7214166-1 (Version None)
Quarter: 2011Q1

REPORT INFORMATION
  Report Type: 
  Country: None (occurrence: None)
  Receive Date: 20110107
  Receipt Date: 20101229
  Transmission Date: 20110831
  Serious: Yes (Hospitalization)
  Sender: FDA-Public Use
  Company Number: US-ELI_LILLY_AND_COMPANY-US201012006580

PATIENT
  Age: 53 Year
  Sex: Male
  Weight: 94.5 kg

DRUGS (4)
  1. ANTIBIOTICS [Concomitant]
     Indication: BRONCHITIS
     Dates: start: 20101201
  2. CISPLATIN [Suspect]
     Indication: LUNG NEOPLASM MALIGNANT
     Dosage: 75 MG/M2, 3/W
     Route: 042
     Dates: start: 20101129
  3. PEMETREXED [Suspect]
     Indication: LUNG NEOPLASM MALIGNANT
     Dosage: 500 MG/M2, 3/W
     Route: 042
     Dates: start: 20101129
  4. OXYGEN [Concomitant]
     Dosage: 2 LITER, UNK

REACTIONS (2)
  - PLEURAL EFFUSION [None]
  - PULMONARY OEDEMA [None]
